FAERS Safety Report 5964861-7 (Version None)
Quarter: 2008Q4

REPORT INFORMATION
  Report Type: 
  Country: None (occurrence: None)
  Receive Date: 20081121
  Receipt Date: 20081112
  Transmission Date: 20090506
  Serious: Yes (Other)
  Sender: FDA-Public Use
  Company Number: CHPA2008US19868

PATIENT
  Sex: Female

DRUGS (1)
  1. BENEFIBER W/WHEAT DEXTRIN (NCH) (WHEAT DEXTRIN) POWDER [Suspect]
     Dosage: ORAL
     Route: 048

REACTIONS (1)
  - VASCULAR GRAFT [None]
